FAERS Safety Report 9001214 (Version 1)
Quarter: 2013Q1

REPORT INFORMATION
  Report Type: Spontaneous
  Country: US (occurrence: US)
  Receive Date: 20130107
  Receipt Date: 20130107
  Transmission Date: 20140127
  Serious: No
  Sender: FDA-Public Use
  Company Number: US-009507513-1301USA002152

PATIENT
  Sex: Female

DRUGS (2)
  1. JANUVIA [Suspect]
     Indication: TYPE 2 DIABETES MELLITUS
     Dosage: UNK
     Route: 048
     Dates: end: 2012
  2. JANUVIA [Suspect]
     Dosage: UNK
     Route: 048
     Dates: start: 201301

REACTIONS (2)
  - Adverse event [Unknown]
  - Drug dose omission [Unknown]
